FAERS Safety Report 8329417-X (Version None)
Quarter: 2012Q2

REPORT INFORMATION
  Report Type: 
  Country: None (occurrence: None)
  Receive Date: 20120502
  Receipt Date: 20120424
  Transmission Date: 20120825
  Serious: Yes (Other)
  Sender: FDA-Public Use
  Company Number: AR-ROCHE-1064258

PATIENT
  Sex: Male

DRUGS (1)
  1. LUCENTIS [Suspect]
     Indication: VISUAL IMPAIRMENT
     Dosage: AT A DOSE OF THREE AMPOULES
     Route: 065
     Dates: start: 20110101

REACTIONS (2)
  - PSEUDOMONAS INFECTION [None]
  - DRUG INEFFECTIVE [None]
